FAERS Safety Report 19139475 (Version 1)
Quarter: 2021Q2

REPORT INFORMATION
  Report Type: Spontaneous
  Country: US (occurrence: US)
  Receive Date: 20210415
  Receipt Date: 20210415
  Transmission Date: 20210717
  Serious: Yes (Other)
  Sender: FDA-Public Use
  Company Number: US-GLAXOSMITHKLINE-US2021GSK084643

PATIENT
  Sex: Male

DRUGS (12)
  1. ZANTAC [Suspect]
     Active Substance: RANITIDINE HYDROCHLORIDE
     Dosage: UNK
  2. RANITIDINE. [Suspect]
     Active Substance: RANITIDINE
     Dosage: 150 MG BOTH
     Route: 065
     Dates: start: 200111, end: 202009
  3. RANITIDINE. [Suspect]
     Active Substance: RANITIDINE
     Dosage: 2? 25MG TABLETS 2X/DAY OR 1 150MG TAB DAILY|BOTH
     Route: 065
     Dates: start: 200111, end: 202009
  4. ZANTAC [Suspect]
     Active Substance: RANITIDINE HYDROCHLORIDE
     Dosage: UNK
  5. RANITIDINE. [Suspect]
     Active Substance: RANITIDINE
     Indication: GASTROOESOPHAGEAL REFLUX DISEASE
     Dosage: 25 MG BOTH
     Route: 065
     Dates: start: 200111, end: 202009
  6. RANITIDINE. [Suspect]
     Active Substance: RANITIDINE
     Dosage: 150 MG BOTH
     Route: 065
     Dates: start: 200111, end: 202009
  7. ZANTAC [Suspect]
     Active Substance: RANITIDINE HYDROCHLORIDE
     Indication: GASTROOESOPHAGEAL REFLUX DISEASE
     Dosage: 2? 25MG TABLETS 2X/DAY OR 1 150MG TAB DAILY|OVER THE COUNTER
     Route: 065
     Dates: start: 200111, end: 202009
  8. ZANTAC [Suspect]
     Active Substance: RANITIDINE HYDROCHLORIDE
     Dosage: UNK
  9. ZANTAC [Suspect]
     Active Substance: RANITIDINE HYDROCHLORIDE
     Indication: GASTROOESOPHAGEAL REFLUX DISEASE
     Dosage: 2? 25MG TABLETS 2X/DAY OR 1 150MG TAB DAILY|OVER THE COUNTER
     Route: 065
     Dates: start: 200111, end: 202009
  10. ZANTAC [Suspect]
     Active Substance: RANITIDINE HYDROCHLORIDE
     Dosage: UNK
  11. RANITIDINE. [Suspect]
     Active Substance: RANITIDINE
     Indication: GASTROOESOPHAGEAL REFLUX DISEASE
     Dosage: 25 MG BOTH
     Route: 065
     Dates: start: 200111, end: 202009
  12. RANITIDINE. [Suspect]
     Active Substance: RANITIDINE
     Dosage: 2? 25MG TABLETS 2X/DAY OR 1 150MG TAB DAILY|BOTH
     Route: 065
     Dates: start: 200111, end: 202009

REACTIONS (1)
  - Prostate cancer [Unknown]
